FAERS Safety Report 13478743 (Version 2)
Quarter: 2017Q2

REPORT INFORMATION
  Report Type: Spontaneous
  Country: BE (occurrence: BE)
  Receive Date: 20170425
  Receipt Date: 20170621
  Transmission Date: 20170830
  Serious: Yes (Other)
  Sender: FDA-Public Use
  Company Number: BE-009507513-1704BEL009813

PATIENT
  Age: 85 Year
  Sex: Male
  Weight: 98 kg

DRUGS (1)
  1. KEYTRUDA [Suspect]
     Active Substance: PEMBROLIZUMAB
     Indication: MALIGNANT MELANOMA
     Dosage: 2 MG/KG, Q3W
     Route: 042
     Dates: start: 20160503, end: 20170209

REACTIONS (2)
  - Diabetes mellitus [Unknown]
  - Pityriasis rubra pilaris [Recovered/Resolved]

NARRATIVE: CASE EVENT DATE: 2017
